FAERS Safety Report 7704279-X (Version None)
Quarter: 2011Q3

REPORT INFORMATION
  Report Type: 
  Country: None (occurrence: None)
  Receive Date: 20110823
  Receipt Date: 20110811
  Transmission Date: 20111222
  Serious: Yes (Other)
  Sender: FDA-Public Use
  Company Number: PHFR2011GB04804

PATIENT

DRUGS (1)
  1. TEGRETOL [Suspect]
     Dosage: 600 MG, BID
     Route: 048

REACTIONS (2)
  - DYSPHAGIA [None]
  - FEELING ABNORMAL [None]
